FAERS Safety Report 13226747 (Version 1)
Quarter: 2017Q1

REPORT INFORMATION
  Report Type: Spontaneous
  Country: US (occurrence: US)
  Receive Date: 20170213
  Receipt Date: 20170213
  Transmission Date: 20170428
  Serious: Yes (Hospitalization, Other)
  Sender: FDA-Public Use
  Company Number: US-BRISTOL-MYERS SQUIBB COMPANY-BMS-2017-010090

PATIENT
  Sex: Male

DRUGS (1)
  1. ELIQUIS [Suspect]
     Active Substance: APIXABAN
     Indication: CEREBROVASCULAR ACCIDENT PROPHYLAXIS
     Route: 048

REACTIONS (7)
  - Splenic rupture [Unknown]
  - Spleen operation [Unknown]
  - Amnesia [Unknown]
  - Transfusion [Unknown]
  - Haemoglobin decreased [Unknown]
  - Mental impairment [Unknown]
  - Haemorrhage [Unknown]
